FAERS Safety Report 25623048 (Version 1)
Quarter: 2025Q3

REPORT INFORMATION
  Report Type: Spontaneous
  Country: US (occurrence: US)
  Receive Date: 20250730
  Receipt Date: 20250730
  Transmission Date: 20251020
  Serious: No
  Sender: GALPHARM INTERNATIONAL
  Company Number: US-PERRIGO-25US006602

PATIENT
  Sex: Female
  Weight: 58.957 kg

DRUGS (6)
  1. LORATADINE [Suspect]
     Active Substance: LORATADINE
     Indication: Pruritus
     Route: 048
     Dates: start: 202503, end: 20250519
  2. LORATADINE [Suspect]
     Active Substance: LORATADINE
     Indication: Upper-airway cough syndrome
     Dosage: 10 MG, BID
     Route: 048
     Dates: start: 20250520, end: 20250520
  3. LORATADINE [Suspect]
     Active Substance: LORATADINE
     Indication: Eye pruritus
  4. LORATADINE [Suspect]
     Active Substance: LORATADINE
     Indication: Throat irritation
  5. LORATADINE [Suspect]
     Active Substance: LORATADINE
     Indication: Sneezing
  6. LORATADINE [Suspect]
     Active Substance: LORATADINE
     Indication: Hypersensitivity

REACTIONS (4)
  - Drug ineffective [Unknown]
  - Incorrect dose administered [Recovered/Resolved]
  - Product use in unapproved indication [Recovered/Resolved]
  - Inappropriate schedule of product administration [Recovered/Resolved]

NARRATIVE: CASE EVENT DATE: 20250301
